FAERS Safety Report 8114161-4 (Version None)
Quarter: 2012Q1

REPORT INFORMATION
  Report Type: 
  Country: None (occurrence: None)
  Receive Date: 20120205
  Receipt Date: 20120127
  Transmission Date: 20120608
  Serious: Yes (Other)
  Sender: FDA-Public Use
  Company Number: PHHY2012US007327

PATIENT
  Age: 72 Year
  Sex: Male

DRUGS (4)
  1. LEUCOVORIN CALCIUM [Suspect]
     Indication: COLON CANCER
     Dosage: UNK UKN, UNK
     Dates: start: 20071201
  2. FLUOROURACIL [Suspect]
     Indication: COLON CANCER
     Dosage: UNK UKN, UNK
     Dates: start: 20071201
  3. OXALIPLATIN [Suspect]
     Indication: COLON CANCER
     Dosage: UNK UKN, UNK
     Dates: start: 20071201
  4. BEVACIZUMAB [Concomitant]
     Indication: COLON CANCER
     Dosage: UNK UKN, UNK
     Dates: start: 20071201

REACTIONS (3)
  - DIARRHOEA [None]
  - WEIGHT DECREASED [None]
  - NEOPLASM MALIGNANT [None]
